FAERS Safety Report 23512967 (Version 2)
Quarter: 2024Q1

REPORT INFORMATION
  Report Type: Spontaneous
  Country: JP (occurrence: None)
  Receive Date: 20240212
  Receipt Date: 20240301
  Transmission Date: 20240409
  Serious: No
  Sender: FDA-Public Use
  Company Number: 2023A267740

PATIENT
  Age: 82 Year
  Sex: Male
  Weight: 63 kg

DRUGS (6)
  1. IMFINZI [Suspect]
     Active Substance: DURVALUMAB
     Indication: Bile duct cancer
     Dosage: DAY 1
     Route: 041
     Dates: start: 20231013, end: 20231013
  2. IMFINZI [Suspect]
     Active Substance: DURVALUMAB
     Indication: Bile duct cancer
     Dosage: DAY 1
     Route: 041
     Dates: start: 20231102
  3. GEMCITABINE HYDROCHLORIDE [Suspect]
     Active Substance: GEMCITABINE HYDROCHLORIDE
     Indication: Bile duct cancer
     Dosage: DAY 1, 81600.0MG UNKNOWN
     Dates: start: 20231013, end: 20231020
  4. GEMCITABINE HYDROCHLORIDE [Suspect]
     Active Substance: GEMCITABINE HYDROCHLORIDE
     Indication: Bile duct cancer
     Dosage: DAY 1, 81120.0MG UNKNOWN
     Dates: start: 20231102
  5. CISPLATIN [Suspect]
     Active Substance: CISPLATIN
     Indication: Bile duct cancer
     Dosage: DAY 1, 840.0MG UNKNOWN
     Dates: start: 20231013, end: 20231020
  6. CISPLATIN [Suspect]
     Active Substance: CISPLATIN
     Indication: Bile duct cancer
     Dosage: DAY 1, 828.0MG UNKNOWN
     Dates: start: 20231102

REACTIONS (1)
  - Neutrophil count decreased [Recovering/Resolving]

NARRATIVE: CASE EVENT DATE: 20231102
